FAERS Safety Report 6983860-X (Version None)
Quarter: 2010Q3

REPORT INFORMATION
  Report Type: 
  Country: None (occurrence: None)
  Receive Date: 20100914
  Receipt Date: 20090223
  Transmission Date: 20110219
  Serious: No
  Sender: FDA-Public Use
  Company Number: US-WYE-H08341509

PATIENT
  Age: 11 Year
  Sex: Male

DRUGS (1)
  1. ADVIL LIQUI-GELS [Suspect]
     Dosage: 3 TABLETS WITHIN 24 HOURS
     Route: 048

REACTIONS (2)
  - DRUG ADMINISTRATION ERROR [None]
  - HEADACHE [None]
